FAERS Safety Report 19708135 (Version 1)
Quarter: 2021Q3

REPORT INFORMATION
  Report Type: Spontaneous
  Country: DE (occurrence: DE)
  Receive Date: 20210817
  Receipt Date: 20210817
  Transmission Date: 20211014
  Serious: Yes (Hospitalization)
  Sender: FDA-Public Use
  Company Number: DE-MYLANLABS-2021M1051295

PATIENT
  Age: 70 Year
  Sex: Male

DRUGS (2)
  1. CLOZAPINE. [Suspect]
     Active Substance: CLOZAPINE
     Indication: AFFECTIVE DISORDER
     Dosage: 25 MILLIGRAM, QD
  2. CITALOPRAM [Concomitant]
     Active Substance: CITALOPRAM HYDROBROMIDE
     Indication: AFFECTIVE DISORDER
     Dosage: 20 MILLIGRAM, QD

REACTIONS (3)
  - Myoglobin blood increased [Unknown]
  - Blood creatine phosphokinase increased [Recovered/Resolved]
  - Myopathy [Recovering/Resolving]
